FAERS Safety Report 19129437 (Version 1)
Quarter: 2021Q2

REPORT INFORMATION
  Report Type: Spontaneous
  Country: GB (occurrence: GB)
  Receive Date: 20210413
  Receipt Date: 20210413
  Transmission Date: 20210717
  Serious: Yes (Other)
  Sender: FDA-Public Use
  Company Number: GB-TAKEDA-2021TJP015942

PATIENT
  Age: 84 Year
  Sex: Female
  Weight: 71 kg

DRUGS (10)
  1. LANSOPRAZOLE. [Suspect]
     Active Substance: LANSOPRAZOLE
     Indication: GASTRIC DISORDER
     Dosage: 30 MG, 1X/DAY
     Route: 048
     Dates: start: 20210323
  2. AMITRIPTYLINE HYDROCHLORIDE. [Concomitant]
     Active Substance: AMITRIPTYLINE HYDROCHLORIDE
     Dosage: 1 DF, 1X/DAY AT NIGHT
     Route: 048
     Dates: start: 20210322
  3. APIXABAN [Concomitant]
     Active Substance: APIXABAN
     Dosage: 1 DF, 2X/DAY
     Route: 048
     Dates: start: 20210322
  4. TIMOLOL. [Concomitant]
     Active Substance: TIMOLOL
     Dosage: 2 DROP, 2X/DAY INTO BOTH EYES
     Dates: start: 20150323
  5. ATORVASTATIN [Concomitant]
     Active Substance: ATORVASTATIN
     Dosage: 1 DF, 1X/DAY AT NIGHT
     Route: 048
     Dates: start: 20210322
  6. RAMIPRIL. [Concomitant]
     Active Substance: RAMIPRIL
     Dosage: 1 DF, 1X/DAY EVERY MORNING
     Route: 048
     Dates: start: 20210322
  7. SENNA [SENNA ALEXANDRINA] [Concomitant]
     Active Substance: SENNA LEAF
     Dosage: 2 DF, 1X/DAY AT NIGHT
     Route: 048
     Dates: start: 20210322
  8. FELODIPINE. [Concomitant]
     Active Substance: FELODIPINE
     Dosage: 1 DF, 1X/DAY EVERY MORNING (TOTAL DAILY DOSE...
     Route: 048
     Dates: start: 20210322
  9. BIMATOPROST. [Concomitant]
     Active Substance: BIMATOPROST
     Dosage: 2 DROP, 1X/DAY INTO BOTH EYES AT NIGHT
     Dates: start: 20150611
  10. PARACETAMOL [Concomitant]
     Active Substance: ACETAMINOPHEN
     Dosage: 2 DF, 4X/DAY
     Route: 048
     Dates: start: 20210322

REACTIONS (1)
  - Joint swelling [Recovered/Resolved]

NARRATIVE: CASE EVENT DATE: 20210326
